FAERS Safety Report 17895457 (Version 1)
Quarter: 2020Q2

REPORT INFORMATION
  Report Type: Spontaneous
  Country: US (occurrence: US)
  Receive Date: 20200615
  Receipt Date: 20200615
  Transmission Date: 20200714
  Serious: Yes (Death)
  Sender: FDA-Public Use
  Company Number: US-PFIZER INC-2020228264

PATIENT
  Age: 30 Year
  Sex: Male

DRUGS (18)
  1. CEFTAZIDIME. [Suspect]
     Active Substance: CEFTAZIDIME
     Dosage: UNK (ADDITIONAL INJECTION)
  2. MOXIFLOXACIN. [Suspect]
     Active Substance: MOXIFLOXACIN
     Indication: PANOPHTHALMITIS
     Dosage: UNK
     Route: 048
  3. PREDNISOLONE. [Suspect]
     Active Substance: PREDNISOLONE
     Indication: PSEUDOMONAS INFECTION
  4. ATROPINE SULFATE. [Suspect]
     Active Substance: ATROPINE SULFATE
     Indication: PSEUDOMONAS INFECTION
     Dosage: UNK
     Route: 061
  5. GANCICLOVIR. [Suspect]
     Active Substance: GANCICLOVIR
     Indication: PANOPHTHALMITIS
     Dosage: UNK
  6. OFLOXACIN. [Suspect]
     Active Substance: OFLOXACIN
     Indication: PANOPHTHALMITIS
     Dosage: UNK
     Route: 061
  7. VANCOMYCIN HCL [Suspect]
     Active Substance: VANCOMYCIN HYDROCHLORIDE
     Dosage: UNK (INTRAVITREAL )
  8. CEFEPIME HCL [Suspect]
     Active Substance: CEFEPIME HYDROCHLORIDE
     Indication: PANOPHTHALMITIS
     Dosage: UNK
  9. CEFTAZIDIME. [Suspect]
     Active Substance: CEFTAZIDIME
     Indication: PANOPHTHALMITIS
     Dosage: UNK (INTRAVITREAL)
  10. AMPHOTERICIN B. [Suspect]
     Active Substance: AMPHOTERICIN B
     Indication: PSEUDOMONAS INFECTION
  11. MOXIFLOXACIN. [Suspect]
     Active Substance: MOXIFLOXACIN
     Indication: PSEUDOMONAS INFECTION
  12. VANCOMYCIN HCL [Suspect]
     Active Substance: VANCOMYCIN HYDROCHLORIDE
     Indication: PANOPHTHALMITIS
     Dosage: UNK
     Route: 042
  13. PREDNISOLONE. [Suspect]
     Active Substance: PREDNISOLONE
     Indication: PANOPHTHALMITIS
     Dosage: UNK
  14. METRONIDAZOLE. [Suspect]
     Active Substance: METRONIDAZOLE
     Indication: PANOPHTHALMITIS
     Dosage: UNK
  15. VANCOMYCIN HCL [Suspect]
     Active Substance: VANCOMYCIN HYDROCHLORIDE
     Dosage: UNK (ADDITIONAL INJECTION)
  16. ATROPINE SULFATE. [Suspect]
     Active Substance: ATROPINE SULFATE
     Indication: PANOPHTHALMITIS
  17. OFLOXACIN. [Suspect]
     Active Substance: OFLOXACIN
     Indication: PSEUDOMONAS INFECTION
  18. AMPHOTERICIN B. [Suspect]
     Active Substance: AMPHOTERICIN B
     Indication: PANOPHTHALMITIS
     Dosage: UNK (VITREOUS ASPIRATION WAS PERFORMED WITH INTRAVITREAL AMPHOTERICIN B)
     Route: 042

REACTIONS (1)
  - Candida infection [Fatal]
